FAERS Safety Report 6862227-9 (Version None)
Quarter: 2010Q3

REPORT INFORMATION
  Report Type: 
  Country: None (occurrence: None)
  Receive Date: 20100721
  Receipt Date: 20100708
  Transmission Date: 20110219
  Serious: Yes (Other)
  Sender: FDA-Public Use
  Company Number: PHHY2010BR44750

PATIENT
  Age: 78 Year
  Sex: Female
  Weight: 52 kg

DRUGS (9)
  1. DIOVAN HCT [Suspect]
     Indication: HYPERTENSION
     Dosage: 80/12.5MG
     Route: 048
  2. DIOVAN HCT [Suspect]
     Dosage: 160/12.5MG
     Route: 048
     Dates: start: 20091108
  3. CALTRATE 600 + VITAMIN D [Concomitant]
     Indication: OSTEOPOROSIS
     Dosage: 1 TABLET DAILY
  4. ALENDRONATE SODIUM [Concomitant]
     Indication: BLOOD CALCIUM ABNORMAL
     Dosage: 1 TABLET A WEEK
     Route: 048
  5. CREON [Concomitant]
     Indication: PANCREATIC DISORDER
     Dosage: 25 MG, 1 TABLET DAILY
     Route: 048
  6. OMEPRAZOLE [Concomitant]
     Dosage: 1 TABLET DAILY
  7. ANTAK [Concomitant]
  8. BETAHISTINE [Concomitant]
     Indication: LABYRINTHITIS
     Dosage: 1 TABLET DAILY
  9. HYDERGINE [Concomitant]
     Indication: LABYRINTHITIS
     Dosage: UNK

REACTIONS (6)
  - BLOOD PRESSURE INCREASED [None]
  - CATARACT OPERATION [None]
  - DIZZINESS [None]
  - HYPOAESTHESIA [None]
  - HYPOAESTHESIA ORAL [None]
  - VISION BLURRED [None]
